FAERS Safety Report 15824221 (Version 2)
Quarter: 2019Q2

REPORT INFORMATION
  Report Type: Report from Study
  Country: None (occurrence: US)
  Receive Date: 20190115
  Receipt Date: 20190404
  Transmission Date: 20190711
  Serious: Yes (Hospitalization)
  Sender: FDA-Public Use
  Company Number: US-ABBVIE-19K-163-2620979-00

PATIENT
  Age: 64 Year
  Sex: Female
  Weight: 86.26 kg

DRUGS (1)
  1. HUMIRA [Suspect]
     Active Substance: ADALIMUMAB
     Indication: CROHN^S DISEASE
     Route: 058
     Dates: start: 20181204

REACTIONS (25)
  - Lymphocyte count decreased [Not Recovered/Not Resolved]
  - Blood chloride decreased [Not Recovered/Not Resolved]
  - Vomiting [Unknown]
  - Lipase increased [Not Recovered/Not Resolved]
  - Anion gap increased [Not Recovered/Not Resolved]
  - Bacterial test positive [Unknown]
  - Blood calcium decreased [Not Recovered/Not Resolved]
  - Fall [Unknown]
  - Colon injury [Unknown]
  - Gastrointestinal oedema [Unknown]
  - Road traffic accident [Unknown]
  - Pelvic fluid collection [Unknown]
  - Blood sodium increased [Not Recovered/Not Resolved]
  - Blood alkaline phosphatase decreased [Not Recovered/Not Resolved]
  - Aspartate aminotransferase increased [Not Recovered/Not Resolved]
  - Hiatus hernia [Unknown]
  - Neutrophil count increased [Not Recovered/Not Resolved]
  - Glomerular filtration rate decreased [Not Recovered/Not Resolved]
  - Pain [Unknown]
  - Blood glucose increased [Not Recovered/Not Resolved]
  - Urine leukocyte esterase positive [Unknown]
  - Monocyte count decreased [Not Recovered/Not Resolved]
  - Haematocrit decreased [Not Recovered/Not Resolved]
  - Red blood cell count decreased [Not Recovered/Not Resolved]
  - Alanine aminotransferase increased [Not Recovered/Not Resolved]

NARRATIVE: CASE EVENT DATE: 201812
